FAERS Safety Report 4424903-7 (Version None)
Quarter: 2004Q3

REPORT INFORMATION
  Report Type: 
  Country: None (occurrence: None)
  Receive Date: 20040719
  Receipt Date: 20040318
  Transmission Date: 20050211
  Serious: Yes (Hospitalization)
  Sender: FDA-Public Use
  Company Number: 194572

PATIENT
  Age: 49 Year
  Sex: Female
  Weight: 84.369 kg

DRUGS (8)
  1. AVONEX [Suspect]
     Indication: MULTIPLE SCLEROSIS
     Dosage: 30 MCG QW IM
     Route: 030
     Dates: start: 19990101, end: 20031101
  2. AVONEX [Suspect]
     Indication: MULTIPLE SCLEROSIS
     Dosage: 30 MCG QW IM
     Route: 030
     Dates: start: 20031101
  3. CALTRATE [Concomitant]
  4. HYDROCHLOROTHIAZIDE [Concomitant]
  5. ZYBAN [Concomitant]
  6. K-DUR 10 [Concomitant]
  7. PARNATE [Concomitant]
  8. LEXAPRO [Concomitant]

REACTIONS (4)
  - DEPRESSION [None]
  - FALLOPIAN TUBE DISORDER [None]
  - HYPERTENSION [None]
  - PELVIC PAIN [None]
